FAERS Safety Report 25099163 (Version 3)
Quarter: 2025Q3

REPORT INFORMATION
  Report Type: Report from Study
  Country: CN (occurrence: CN)
  Receive Date: 20250320
  Receipt Date: 20250810
  Transmission Date: 20251020
  Serious: Yes (Other)
  Sender: ALEXION PHARMACEUTICALS
  Company Number: CN-ASTRAZENECA-202503GLO008747CN

PATIENT
  Age: 14 Year
  Sex: Male

DRUGS (4)
  1. SELUMETINIB [Suspect]
     Active Substance: SELUMETINIB
     Dosage: 40 MILLIGRAM, BID
     Route: 065
     Dates: start: 20250301
  2. CEFDINIR [Concomitant]
     Active Substance: CEFDINIR
     Dosage: UNK MILLIGRAM, TID
     Route: 065
     Dates: start: 20250307
  3. FUSIDIC ACID [Concomitant]
     Active Substance: FUSIDIC ACID
     Dosage: UNK GRAM, BID
     Route: 065
     Dates: start: 20250312
  4. BIFONAZOLE [Concomitant]
     Active Substance: BIFONAZOLE
     Dosage: UNK GRAM, QD
     Route: 065
     Dates: start: 20250312

REACTIONS (1)
  - Infusion site dermatitis [Not Recovered/Not Resolved]

NARRATIVE: CASE EVENT DATE: 20250305
